FAERS Safety Report 16218525 (Version 4)
Quarter: 2019Q4

REPORT INFORMATION
  Report Type: Spontaneous
  Country: US (occurrence: US)
  Receive Date: 20190419
  Receipt Date: 20191018
  Transmission Date: 20200122
  Serious: No
  Sender: FDA-Public Use
  Company Number: US-TEVA-2019-US-1030154

PATIENT
  Sex: Female

DRUGS (1)
  1. TEVA ANASTROZOLE TABLETS [Suspect]
     Active Substance: ANASTROZOLE
     Route: 065
     Dates: end: 20190407

REACTIONS (8)
  - Hot flush [Not Recovered/Not Resolved]
  - Adverse drug reaction [Unknown]
  - Product supply issue [Unknown]
  - Insomnia [Not Recovered/Not Resolved]
  - Anxiety [Not Recovered/Not Resolved]
  - Arthralgia [Unknown]
  - Depression [Unknown]
  - Mood altered [Not Recovered/Not Resolved]
